FAERS Safety Report 7767216-8 (Version None)
Quarter: 2011Q3

REPORT INFORMATION
  Report Type: 
  Country: None (occurrence: None)
  Receive Date: 20110922
  Receipt Date: 20110411
  Transmission Date: 20111222
  Serious: No
  Sender: FDA-Public Use
  Company Number: US-ASTRAZENECA-2011SE20801

PATIENT
  Age: 56 Year
  Sex: Male
  Weight: 102.1 kg

DRUGS (4)
  1. SEROQUEL [Suspect]
     Indication: SLEEP DISORDER
     Route: 048
  2. SEROQUEL [Suspect]
     Route: 048
     Dates: start: 20110408
  3. HYZAR [Concomitant]
  4. VITAMIN TAB [Concomitant]

REACTIONS (4)
  - TACHYPHRENIA [None]
  - MEMORY IMPAIRMENT [None]
  - SOMNOLENCE [None]
  - OFF LABEL USE [None]
